FAERS Safety Report 16544525 (Version 2)
Quarter: 2019Q3

REPORT INFORMATION
  Report Type: Spontaneous
  Country: JP (occurrence: JP)
  Receive Date: 20190709
  Receipt Date: 20190903
  Transmission Date: 20191004
  Serious: Yes (Hospitalization, Other)
  Sender: FDA-Public Use
  Company Number: JP-PFIZER INC-2019281737

PATIENT
  Age: 65 Year
  Sex: Male

DRUGS (1)
  1. ANCARON [Suspect]
     Active Substance: AMIODARONE HYDROCHLORIDE
     Indication: VENTRICULAR FIBRILLATION
     Dosage: UNK
     Route: 065

REACTIONS (9)
  - Altered state of consciousness [Recovering/Resolving]
  - Condition aggravated [Recovering/Resolving]
  - Pulmonary congestion [Recovering/Resolving]
  - Heart rate increased [Recovering/Resolving]
  - Hyperthyroidism [Recovering/Resolving]
  - Tachycardia [Recovering/Resolving]
  - Cardiomegaly [Recovering/Resolving]
  - Cardiac failure [Recovering/Resolving]
  - Orthopnoea [Recovering/Resolving]
